FAERS Safety Report 9436803 (Version 2)
Quarter: 2013Q4

REPORT INFORMATION
  Report Type: Spontaneous
  Country: HU (occurrence: HU)
  Receive Date: 20130802
  Receipt Date: 20131016
  Transmission Date: 20140711
  Serious: Yes (Life-Threatening, Hospitalization)
  Sender: FDA-Public Use
  Company Number: HU-TEVA-420808ISR

PATIENT
  Age: 75 Year
  Sex: Male

DRUGS (2)
  1. CLOPIDOGREL [Suspect]
     Indication: ANGINA PECTORIS
     Dates: start: 2010, end: 2011
  2. ACETYLSALICYLIC ACID [Suspect]
     Indication: ANGINA PECTORIS
     Dates: start: 2010

REACTIONS (8)
  - Acquired haemophilia with anti FVIII, XI, or XIII [Unknown]
  - Mouth haemorrhage [Recovered/Resolved]
  - Mouth haemorrhage [Recovered/Resolved]
  - Haematuria [Recovered/Resolved]
  - Contusion [Recovered/Resolved]
  - Dysphagia [Unknown]
  - Dyspnoea [Unknown]
  - Haematoma [Unknown]
